FAERS Safety Report 9471764 (Version 4)
Quarter: 2016Q3

REPORT INFORMATION
  Report Type: Spontaneous
  Country: US (occurrence: US)
  Receive Date: 20130822
  Receipt Date: 20160912
  Transmission Date: 20161109
  Serious: Yes (Hospitalization, Other)
  Sender: FDA-Public Use
  Company Number: US-GLAXOSMITHKLINE-A1038609A

PATIENT
  Sex: Female

DRUGS (1)
  1. ADVAIR HFA [Suspect]
     Active Substance: FLUTICASONE PROPIONATE\SALMETEROL XINAFOATE
     Indication: CHRONIC OBSTRUCTIVE PULMONARY DISEASE
     Dosage: 500/50MCG UNK, U
     Route: 055
     Dates: start: 2001

REACTIONS (5)
  - Chronic obstructive pulmonary disease [Unknown]
  - Tracheomalacia [Unknown]
  - Hospitalisation [Unknown]
  - Malaise [Unknown]
  - Drug ineffective [Unknown]
